FAERS Safety Report 9326342 (Version 1)
Quarter: 2013Q2

REPORT INFORMATION
  Report Type: Spontaneous
  Country: US (occurrence: US)
  Receive Date: 20130604
  Receipt Date: 20130604
  Transmission Date: 20140414
  Serious: Yes (Hospitalization)
  Sender: FDA-Public Use
  Company Number: US-ABBOTT-13P-163-1097077-00

PATIENT
  Age: 12 Year
  Sex: Male
  Weight: 69.92 kg

DRUGS (10)
  1. DEPAKOTE ER [Suspect]
     Indication: AFFECTIVE DISORDER
     Route: 048
     Dates: start: 20120301, end: 201303
  2. DEPAKOTE ER [Suspect]
     Route: 048
     Dates: start: 201303
  3. MENINGOCOCCAL POLYSACCHARIDE VACCINE A [Suspect]
     Indication: IMMUNISATION
     Dosage: CODE NOT BROKEN (BLINDED)
     Dates: start: 20121207, end: 20121207
  4. MENINGOCOCCAL POLYSACCHARIDE VACCINE A [Suspect]
     Dates: start: 20121009, end: 20121009
  5. PROZAC [Suspect]
     Indication: AFFECTIVE DISORDER
     Route: 048
     Dates: start: 20121108
  6. VYVANSE [Suspect]
     Indication: AFFECTIVE DISORDER
     Dosage: EVERY MORNING
     Route: 048
     Dates: start: 20130123, end: 201303
  7. VYVANSE [Suspect]
     Dosage: 40MG IN MORNING AND 20MG AT LUNCH
     Route: 048
     Dates: start: 201303
  8. DESYREL [Suspect]
     Indication: AFFECTIVE DISORDER
     Dosage: NIGHTLY
     Route: 048
     Dates: start: 20130108
  9. DESYREL [Suspect]
     Indication: SLEEP DISORDER
  10. CATAPRES [Suspect]
     Indication: AFFECTIVE DISORDER
     Dosage: NIGHTLY
     Route: 048
     Dates: start: 20120301

REACTIONS (6)
  - Affective disorder [Recovered/Resolved]
  - Aggression [Recovered/Resolved]
  - Suicidal ideation [Unknown]
  - Treatment noncompliance [Unknown]
  - Hospitalisation [Unknown]
  - Sleep disorder [Unknown]
